FAERS Safety Report 7039648-7 (Version None)
Quarter: 2010Q4

REPORT INFORMATION
  Report Type: 
  Country: None (occurrence: None)
  Receive Date: 20101012
  Receipt Date: 20101004
  Transmission Date: 20110411
  Serious: Yes (Other)
  Sender: FDA-Public Use
  Company Number: A0885768A

PATIENT
  Age: 16 Year
  Sex: Male
  Weight: 68.2 kg

DRUGS (1)
  1. AVODART [Suspect]
     Route: 065

REACTIONS (3)
  - DECREASED APPETITE [None]
  - MUSCLE ATROPHY [None]
  - WEIGHT DECREASED [None]
